FAERS Safety Report 7225018-5 (Version None)
Quarter: 2010Q4

REPORT INFORMATION
  Report Type: 
  Country: None (occurrence: None)
  Receive Date: 20101223
  Receipt Date: 20101210
  Transmission Date: 20110411
  Serious: Yes (Other)
  Sender: FDA-Public Use
  Company Number: 2010027189

PATIENT
  Age: 73 Year
  Sex: Female

DRUGS (4)
  1. VIVAGLOBIN [Suspect]
     Indication: HYPOGAMMAGLOBULINAEMIA
     Dosage: 2 DF 1X/WEEK, INTRAVENOUS
     Route: 042
     Dates: start: 20100920
  2. VIVAGLOBIN [Suspect]
     Indication: WALDENSTROM'S MACROGLOBULINAEMIA
     Dosage: 2 DF 1X/WEEK, INTRAVENOUS
     Route: 042
     Dates: start: 20100920
  3. VIVAGLOBIN [Suspect]
     Indication: HYPOGAMMAGLOBULINAEMIA
     Dosage: 2 DF 1X/WEEK, INTRAVENOUS
     Route: 042
     Dates: start: 20101004
  4. VIVAGLOBIN [Suspect]
     Indication: WALDENSTROM'S MACROGLOBULINAEMIA
     Dosage: 2 DF 1X/WEEK, INTRAVENOUS
     Route: 042
     Dates: start: 20101004

REACTIONS (3)
  - CEREBELLAR SYNDROME [None]
  - ISCHAEMIC STROKE [None]
  - OPHTHALMOPLEGIA [None]
